FAERS Safety Report 12372607 (Version 1)
Quarter: 2016Q2

REPORT INFORMATION
  Report Type: Spontaneous
  Country: US (occurrence: US)
  Receive Date: 20160516
  Receipt Date: 20160516
  Transmission Date: 20160815
  Serious: No
  Sender: FDA-Public Use
  Company Number: US-PFIZER INC-2016257972

PATIENT
  Sex: Female
  Weight: 58 kg

DRUGS (1)
  1. ADVIL PM [Suspect]
     Active Substance: DIPHENHYDRAMINE CITRATE\IBUPROFEN
     Indication: SLEEP DISORDER
     Dosage: 200MG IBUPROFEN/ 25MG DIPHENHYDRAMINE, 1 DF, DAILY

REACTIONS (4)
  - Product difficult to swallow [Not Recovered/Not Resolved]
  - Dysphagia [Not Recovered/Not Resolved]
  - Intentional product misuse [Unknown]
  - Product shape issue [Not Recovered/Not Resolved]
